FAERS Safety Report 8841325 (Version 3)
Quarter: 2013Q1

REPORT INFORMATION
  Report Type: Report from Study
  Country: FR (occurrence: FR)
  Receive Date: 20121015
  Receipt Date: 20130318
  Transmission Date: 20140127
  Serious: Yes (Other)
  Sender: FDA-Public Use
  Company Number: FR-PFIZER INC-2012251698

PATIENT
  Age: 43 Year
  Sex: Female
  Weight: 53 kg

DRUGS (5)
  1. CRIZOTINIB [Suspect]
     Indication: LUNG ADENOCARCINOMA
     Dosage: 250 MG, 1X/DAY
     Dates: start: 201109, end: 201208
  2. DIFFU K [Concomitant]
     Dosage: UNK
     Dates: start: 201012
  3. CACITVIT D3 [Concomitant]
     Dosage: UNK
     Dates: start: 20120718
  4. KEPPRA [Concomitant]
     Dosage: UNK
     Dates: start: 201012
  5. HOMEOPATICS NOS [Concomitant]

REACTIONS (1)
  - Hepatocellular injury [Recovering/Resolving]
